FAERS Safety Report 4822176-4 (Version None)
Quarter: 2005Q4

REPORT INFORMATION
  Report Type: 
  Country: None (occurrence: None)
  Receive Date: 20051103
  Receipt Date: 20051021
  Transmission Date: 20060501
  Serious: Yes (Other)
  Sender: FDA-Public Use
  Company Number: 2005145052

PATIENT
  Age: 58 Year
  Sex: Male
  Weight: 167.8309 kg

DRUGS (3)
  1. POLYSPORIN OINTMENT [Suspect]
     Indication: LACERATION
     Dosage: 3 ^SMALL DABS^ ONCE, TOPICAL
     Route: 061
     Dates: start: 20051012, end: 20051012
  2. ATENOLOL [Concomitant]
  3. BUPROPION HYDROCHLORIDE [Concomitant]

REACTIONS (3)
  - FLUSHING [None]
  - SWELLING FACE [None]
  - THROAT TIGHTNESS [None]
